FAERS Safety Report 8111987-8 (Version None)
Quarter: 2012Q1

REPORT INFORMATION
  Report Type: 
  Country: None (occurrence: None)
  Receive Date: 20120203
  Receipt Date: 20120127
  Transmission Date: 20120608
  Serious: Yes (Other)
  Sender: FDA-Public Use
  Company Number: JP-PFIZER INC-2012023746

PATIENT
  Age: 77 Year
  Sex: Male

DRUGS (2)
  1. LANSOPRAZOLE [Concomitant]
  2. SUTENT [Suspect]
     Dosage: UNK
     Route: 048
     Dates: start: 20090301

REACTIONS (7)
  - BLOOD PRESSURE INCREASED [None]
  - RHEUMATOID ARTHRITIS [None]
  - JOINT SWELLING [None]
  - THYROID DISORDER [None]
  - PALMAR-PLANTAR ERYTHRODYSAESTHESIA SYNDROME [None]
  - MUSCLE SPASMS [None]
  - MUSCULOSKELETAL STIFFNESS [None]
